FAERS Safety Report 25054819 (Version 2)
Quarter: 2025Q1

REPORT INFORMATION
  Report Type: Report from Study
  Country: IT (occurrence: IT)
  Receive Date: 20250308
  Receipt Date: 20250327
  Transmission Date: 20250408
  Serious: Yes (Hospitalization, Other)
  Sender: JOHNSON AND JOHNSON
  Company Number: IT-JNJFOC-20250167438

PATIENT
  Sex: Female
  Weight: 48 kg

DRUGS (44)
  1. UPTRAVI [Suspect]
     Active Substance: SELEXIPAG
     Indication: Pulmonary arterial hypertension
     Route: 048
     Dates: start: 20200703, end: 20200709
  2. UPTRAVI [Suspect]
     Active Substance: SELEXIPAG
     Route: 048
     Dates: start: 20200710, end: 20200716
  3. UPTRAVI [Suspect]
     Active Substance: SELEXIPAG
     Route: 048
     Dates: start: 20200717, end: 20200820
  4. UPTRAVI [Suspect]
     Active Substance: SELEXIPAG
     Route: 048
     Dates: start: 20200821, end: 20200827
  5. UPTRAVI [Suspect]
     Active Substance: SELEXIPAG
     Route: 048
     Dates: start: 20200828, end: 20200903
  6. UPTRAVI [Suspect]
     Active Substance: SELEXIPAG
     Route: 048
     Dates: start: 20200904, end: 20220125
  7. UPTRAVI [Suspect]
     Active Substance: SELEXIPAG
     Route: 048
     Dates: start: 20200615, end: 20200625
  8. UPTRAVI [Suspect]
     Active Substance: SELEXIPAG
     Route: 048
  9. OPSUMIT [Suspect]
     Active Substance: MACITENTAN
     Indication: Pulmonary arterial hypertension
     Route: 048
     Dates: start: 20200615
  10. EPOPROSTENOL [Suspect]
     Active Substance: EPOPROSTENOL
     Indication: Pulmonary arterial hypertension
     Dates: start: 20220421, end: 20220513
  11. EPOPROSTENOL [Suspect]
     Active Substance: EPOPROSTENOL
     Dates: start: 20220513, end: 20220617
  12. EPOPROSTENOL [Suspect]
     Active Substance: EPOPROSTENOL
     Dates: start: 20220617, end: 20221026
  13. EPOPROSTENOL [Suspect]
     Active Substance: EPOPROSTENOL
     Dates: start: 20230306, end: 20230313
  14. EPOPROSTENOL [Suspect]
     Active Substance: EPOPROSTENOL
     Dates: start: 20221026, end: 20230305
  15. EPOPROSTENOL [Suspect]
     Active Substance: EPOPROSTENOL
     Dates: start: 20230314, end: 20230331
  16. EPOPROSTENOL [Suspect]
     Active Substance: EPOPROSTENOL
     Dates: start: 20230401, end: 20230424
  17. EPOPROSTENOL [Suspect]
     Active Substance: EPOPROSTENOL
     Dates: start: 20230425, end: 20230522
  18. EPOPROSTENOL [Suspect]
     Active Substance: EPOPROSTENOL
     Dates: start: 20230523, end: 20230605
  19. EPOPROSTENOL [Suspect]
     Active Substance: EPOPROSTENOL
     Dates: start: 20230606, end: 20230626
  20. EPOPROSTENOL [Suspect]
     Active Substance: EPOPROSTENOL
     Dates: start: 20230627, end: 20240324
  21. EPOPROSTENOL [Suspect]
     Active Substance: EPOPROSTENOL
     Dates: start: 20240325, end: 20240620
  22. EPOPROSTENOL [Suspect]
     Active Substance: EPOPROSTENOL
     Dates: start: 20240621
  23. VALPROATE SODIUM [Concomitant]
     Active Substance: VALPROATE SODIUM
     Indication: Depression
     Route: 048
     Dates: start: 20000103
  24. ZOLPIDEM [Concomitant]
     Active Substance: ZOLPIDEM TARTRATE
     Indication: Depression
     Route: 048
     Dates: start: 20000103
  25. AMITRIPTYLINE [Concomitant]
     Active Substance: AMITRIPTYLINE
     Indication: Depression
     Route: 048
     Dates: start: 20000103
  26. DARATUMUMAB [Concomitant]
     Active Substance: DARATUMUMAB
     Indication: Plasma cell myeloma
     Dates: start: 202211
  27. LENALIDOMIDE [Concomitant]
     Active Substance: LENALIDOMIDE
     Indication: Plasma cell myeloma
     Dates: start: 202211
  28. VALACYCLOVIR HYDROCHLORIDE [Concomitant]
     Active Substance: VALACYCLOVIR HYDROCHLORIDE
     Indication: Prophylaxis
     Route: 048
     Dates: start: 202211
  29. TRIMETHOPRIM [Concomitant]
     Active Substance: TRIMETHOPRIM
     Indication: Prophylaxis
     Route: 048
     Dates: start: 202211
  30. EPOETIN ALFA [Concomitant]
     Active Substance: ERYTHROPOIETIN
     Indication: Anaemia
     Route: 058
     Dates: start: 2023
  31. ADEMPAS [Concomitant]
     Active Substance: RIOCIGUAT
     Indication: Pulmonary arterial hypertension
     Route: 048
     Dates: start: 20210303, end: 20210317
  32. SILDENAFIL [Concomitant]
     Active Substance: SILDENAFIL
     Indication: Pulmonary arterial hypertension
     Route: 048
     Dates: start: 20210319
  33. TREPROSTINIL SODIUM [Concomitant]
     Active Substance: TREPROSTINIL SODIUM
     Indication: Pulmonary arterial hypertension
     Dates: start: 20220122, end: 20220123
  34. TREPROSTINIL SODIUM [Concomitant]
     Active Substance: TREPROSTINIL SODIUM
     Dates: start: 20220123, end: 20220125
  35. TREPROSTINIL SODIUM [Concomitant]
     Active Substance: TREPROSTINIL SODIUM
     Dates: start: 20220125, end: 20220203
  36. TREPROSTINIL SODIUM [Concomitant]
     Active Substance: TREPROSTINIL SODIUM
     Dates: start: 20220121
  37. TREPROSTINIL SODIUM [Concomitant]
     Active Substance: TREPROSTINIL SODIUM
     Dates: start: 20220203, end: 20220207
  38. TREPROSTINIL SODIUM [Concomitant]
     Active Substance: TREPROSTINIL SODIUM
     Dates: start: 20220207, end: 20220210
  39. TREPROSTINIL SODIUM [Concomitant]
     Active Substance: TREPROSTINIL SODIUM
     Dates: start: 20220218, end: 20220218
  40. TREPROSTINIL SODIUM [Concomitant]
     Active Substance: TREPROSTINIL SODIUM
     Dates: start: 20220218, end: 20220225
  41. TREPROSTINIL SODIUM [Concomitant]
     Active Substance: TREPROSTINIL SODIUM
     Dates: start: 20220225, end: 20220302
  42. TREPROSTINIL SODIUM [Concomitant]
     Active Substance: TREPROSTINIL SODIUM
     Dates: start: 20220210, end: 20220214
  43. TREPROSTINIL SODIUM [Concomitant]
     Active Substance: TREPROSTINIL SODIUM
     Dates: start: 20220307, end: 20220420
  44. TREPROSTINIL SODIUM [Concomitant]
     Active Substance: TREPROSTINIL SODIUM
     Dates: start: 20220302, end: 20230307

REACTIONS (4)
  - Abdominal pain [Unknown]
  - Anaemia [Recovered/Resolved]
  - Haemorrhage [Unknown]
  - Epistaxis [Unknown]

NARRATIVE: CASE EVENT DATE: 20221108
